FAERS Safety Report 5257456-4 (Version None)
Quarter: 2007Q1

REPORT INFORMATION
  Report Type: 
  Country: None (occurrence: None)
  Receive Date: 20070307
  Receipt Date: 20060808
  Transmission Date: 20070707
  Serious: No
  Sender: FDA-Public Use
  Company Number: US-GLAXOSMITHKLINE-A0615797A

PATIENT
  Age: 66 Year
  Sex: Female

DRUGS (15)
  1. REQUIP [Suspect]
     Indication: RESTLESS LEGS SYNDROME
     Dosage: 1MG PER DAY
     Route: 048
  2. PERCOCET [Concomitant]
  3. SYNTHROID [Concomitant]
  4. EVISTA [Concomitant]
  5. ZESTRIL [Concomitant]
  6. LASIX [Concomitant]
  7. VERAPAMIL [Concomitant]
  8. SPIRONOLACTONE [Concomitant]
  9. ZANTAC [Concomitant]
  10. TOPROL-XL [Concomitant]
  11. PLENDIL [Concomitant]
  12. CARDURA [Concomitant]
  13. ULTRAM [Concomitant]
  14. DARVOCET [Concomitant]
  15. MORPHINE [Concomitant]

REACTIONS (1)
  - DRUG INEFFECTIVE [None]
